FAERS Safety Report 5176023-4 (Version None)
Quarter: 2006Q4

REPORT INFORMATION
  Report Type: 
  Country: None (occurrence: None)
  Receive Date: 20061215
  Receipt Date: 20061204
  Transmission Date: 20070319
  Serious: Yes (Hospitalization)
  Sender: FDA-Public Use
  Company Number: IE-ROCHE-474142

PATIENT
  Age: 55 Year
  Sex: Male

DRUGS (2)
  1. TAMIFLU [Suspect]
     Indication: INFLUENZA
     Route: 048
     Dates: start: 20050215, end: 20050215
  2. NU-SEALS [Concomitant]
     Dosage: WAS REPORTED AS NUSEALS ASPIRIN.
     Route: 048

REACTIONS (2)
  - SEPSIS [None]
  - VOMITING [None]
